FAERS Safety Report 11527011 (Version 1)
Quarter: 2015Q3

REPORT INFORMATION
  Report Type: Spontaneous
  Country: US (occurrence: US)
  Receive Date: 20150903
  Receipt Date: 20150903
  Transmission Date: 20151125
  Serious: No
  Sender: FDA-Public Use
  Company Number: US-ELI_LILLY_AND_COMPANY-US200909006362

PATIENT
  Sex: Female

DRUGS (12)
  1. PROTONIX [Concomitant]
     Active Substance: PANTOPRAZOLE SODIUM
  2. MURO 128 [Concomitant]
     Active Substance: SODIUM CHLORIDE
  3. HUMALOG [Suspect]
     Active Substance: INSULIN LISPRO
     Dates: start: 1995
  4. LEVEMIR [Concomitant]
     Active Substance: INSULIN DETEMIR
  5. HYZAAR [Concomitant]
     Active Substance: HYDROCHLOROTHIAZIDE\LOSARTAN POTASSIUM
  6. JANUVIA [Concomitant]
     Active Substance: SITAGLIPTIN PHOSPHATE
  7. CARDIZEM [Concomitant]
     Active Substance: DILTIAZEM HYDROCHLORIDE
  8. KLONOPIN [Concomitant]
     Active Substance: CLONAZEPAM
  9. TOPROL XL [Concomitant]
     Active Substance: METOPROLOL SUCCINATE
  10. POTASSIUM [Concomitant]
     Active Substance: POTASSIUM
  11. BYETTA [Concomitant]
     Active Substance: EXENATIDE
  12. BLEPH-10 [Concomitant]
     Active Substance: SULFACETAMIDE SODIUM

REACTIONS (4)
  - Eye disorder [Not Recovered/Not Resolved]
  - Cataract [Not Recovered/Not Resolved]
  - Corneal dystrophy [Not Recovered/Not Resolved]
  - Corneal transplant [Recovered/Resolved]

NARRATIVE: CASE EVENT DATE: 2007
